FAERS Safety Report 5563292-1 (Version None)
Quarter: 2007Q4

REPORT INFORMATION
  Report Type: 
  Country: None (occurrence: None)
  Receive Date: 20071217
  Receipt Date: 20071206
  Transmission Date: 20080405
  Serious: Yes (Life-Threatening)
  Sender: FDA-Public Use
  Company Number: AU-ROCHE-535510

PATIENT
  Age: 85 Year
  Sex: Male

DRUGS (1)
  1. CEFTRIAXONE SODIUM [Suspect]
     Indication: DRUG USE FOR UNKNOWN INDICATION
     Dosage: FREQUENCY: ONE TIME.
     Route: 042
     Dates: start: 20070802, end: 20070802

REACTIONS (3)
  - ERYTHEMA [None]
  - GRUNTING [None]
  - PULSE ABSENT [None]
